FAERS Safety Report 6059298-9 (Version None)
Quarter: 2009Q1

REPORT INFORMATION
  Report Type: 
  Country: None (occurrence: None)
  Receive Date: 20090130
  Receipt Date: 20090121
  Transmission Date: 20090719
  Serious: Yes (Death)
  Sender: FDA-Public Use
  Company Number: HU-ROCHE-610371

PATIENT
  Sex: Female
  Weight: 90 kg

DRUGS (8)
  1. IBANDRONATE SODIUM [Suspect]
     Route: 042
     Dates: start: 20081216
  2. ACCUPRO [Concomitant]
     Dates: start: 19870101, end: 20090102
  3. LOKREN [Concomitant]
     Dates: start: 19870101, end: 20090102
  4. FURON [Concomitant]
     Dates: start: 19870101, end: 20090102
  5. KALDYUM [Concomitant]
     Dates: start: 19870101, end: 20090102
  6. VALERIANE [Concomitant]
     Dates: start: 20081217, end: 20090102
  7. ETHYLMORPHINI HYDROCHLORIDUM [Concomitant]
     Dates: start: 20081217, end: 20090102
  8. TRAMADOL HCL [Concomitant]
     Dates: start: 20081203, end: 20090102

REACTIONS (1)
  - DEATH [None]
